FAERS Safety Report 5316362-7 (Version None)
Quarter: 2007Q2

REPORT INFORMATION
  Report Type: 
  Country: None (occurrence: None)
  Receive Date: 20070430
  Receipt Date: 20070418
  Transmission Date: 20071010
  Serious: Yes (Hospitalization, Other)
  Sender: FDA-Public Use
  Company Number: 2007-00700

PATIENT
  Age: 76 Year
  Sex: Male
  Weight: 90.7 kg

DRUGS (17)
  1. VELCADE [Suspect]
     Indication: MULTIPLE MYELOMA
     Dosage: 1.30 MG/M2
     Dates: start: 20070102, end: 20070202
  2. DEXAMETHASONE TAB [Suspect]
     Indication: MULTIPLE MYELOMA
     Dosage: 40.00 MG, ORAL
     Route: 048
     Dates: start: 20070102
  3. INSULIN, REGULAR (INSULIN) [Concomitant]
  4. NPH INSULIN (INSULIN INJECTION, ISOPHANE) [Concomitant]
  5. AMIODARONE HCL [Concomitant]
  6. DIOVAN [Concomitant]
  7. LASIX [Concomitant]
  8. PROCHLORPERAZINE MALEATE [Concomitant]
  9. POTASSIUM (POTASSIUM) [Concomitant]
  10. AMICAR [Concomitant]
  11. CRESTOR [Concomitant]
  12. ASPIRIN [Concomitant]
  13. CARDIZEM [Concomitant]
  14. HYDROCHLOROTHIAZIDE [Concomitant]
  15. DARVOCET-N (PARACETAMOL, DEXTROPROPOXYPHENE NAPSILATE) [Concomitant]
  16. COUMADIN [Concomitant]
  17. NIASPAN [Concomitant]

REACTIONS (20)
  - ABASIA [None]
  - ASTHENIA [None]
  - BONE PAIN [None]
  - CONVULSION [None]
  - DELIRIUM [None]
  - DEMENTIA [None]
  - DIZZINESS POSTURAL [None]
  - ENCEPHALOPATHY [None]
  - FALL [None]
  - FATIGUE [None]
  - HYPOTENSION [None]
  - MUSCULOSKELETAL STIFFNESS [None]
  - MYOCLONUS [None]
  - NECK PAIN [None]
  - NEUROPATHY PERIPHERAL [None]
  - OEDEMA PERIPHERAL [None]
  - ORTHOSTATIC HYPOTENSION [None]
  - PYREXIA [None]
  - TREMOR [None]
  - VIRAL RASH [None]
